FAERS Safety Report 6421179-6 (Version None)
Quarter: 2009Q4

REPORT INFORMATION
  Report Type: 
  Country: None (occurrence: None)
  Receive Date: 20091030
  Receipt Date: 20091027
  Transmission Date: 20100525
  Serious: Yes (Life-Threatening)
  Sender: FDA-Public Use
  Company Number: FR-ASTRAZENECA-2009SE22971

PATIENT
  Age: 40 Year
  Sex: Female
  Weight: 69 kg

DRUGS (5)
  1. PROPOFOL [Suspect]
     Indication: GENERAL ANAESTHESIA
  2. ALFENTANIL [Suspect]
     Indication: GENERAL ANAESTHESIA
  3. OXIGEN/NITROGEN DIOXIDE [Concomitant]
     Dosage: 50/50 MIXTURE
     Route: 055
  4. LACTATED RINGER'S [Concomitant]
  5. EPHEDRINE [Concomitant]

REACTIONS (1)
  - ANAPHYLACTOID SYNDROME OF PREGNANCY [None]
